FAERS Safety Report 13438725 (Version 1)
Quarter: 2017Q2

REPORT INFORMATION
  Report Type: Other
  Country: US (occurrence: US)
  Receive Date: 20170412
  Receipt Date: 20170412
  Transmission Date: 20170830
  Serious: Yes (Life-Threatening)
  Sender: FDA-Public Use
  Company Number: US-MEDICURE INC.-1065330

PATIENT
  Age: 44 Year
  Sex: Male

DRUGS (17)
  1. TRANEXAMIC ACID. [Concomitant]
     Active Substance: TRANEXAMIC ACID
  2. AGGRASTAT [Suspect]
     Active Substance: TIROFIBAN HYDROCHLORIDE
     Indication: ANTIPLATELET THERAPY
     Route: 040
  3. AGGRASTAT [Suspect]
     Active Substance: TIROFIBAN HYDROCHLORIDE
     Route: 041
  4. TRANEXAMIC ACID. [Concomitant]
     Active Substance: TRANEXAMIC ACID
  5. PROTAMINE SULFATE. [Concomitant]
     Active Substance: PROTAMINE SULFATE
  6. CRYOPRECIPITATE [Concomitant]
     Active Substance: CRYOPRECIPITATED ANTIHEMOPHILIC FACTOR (HUMAN)
  7. PLATELETS [Concomitant]
     Active Substance: HUMAN PLATELET, ALLOGENIC
  8. KETAMINE HYDROCHLORIDE. [Concomitant]
     Active Substance: KETAMINE HYDROCHLORIDE
  9. FENTANYL. [Concomitant]
     Active Substance: FENTANYL
  10. CISATRACURIUM. [Concomitant]
     Active Substance: CISATRACURIUM
  11. FRESH FROZEN PLASMA [Concomitant]
     Active Substance: HUMAN PLASMA
  12. ALPHANINE SD [Concomitant]
     Active Substance: COAGULATION FACTOR IX HUMAN
  13. PACKED RED BLOOD CELLS [Concomitant]
     Active Substance: HUMAN RED BLOOD CELL
  14. THREE-FACTOR PRO-THROMBIN COMPLEX CONCENTRATE (PCC) [Concomitant]
  15. HEPARIN [Concomitant]
     Active Substance: HEPARIN SODIUM
  16. HEPARIN [Concomitant]
     Active Substance: HEPARIN SODIUM
  17. MIDAZOLAM [Concomitant]
     Active Substance: MIDAZOLAM HYDROCHLORIDE

REACTIONS (3)
  - Pulmonary oedema [Recovered/Resolved]
  - Postoperative wound infection [Recovered/Resolved with Sequelae]
  - Poor quality sleep [Unknown]
